FAERS Safety Report 18128064 (Version 2)
Quarter: 2021Q2

REPORT INFORMATION
  Report Type: Spontaneous
  Country: None (occurrence: US)
  Receive Date: 20200810
  Receipt Date: 20210618
  Transmission Date: 20210717
  Serious: Yes (Other)
  Sender: FDA-Public Use
  Company Number: US-GLAXOSMITHKLINE-US2020154588

PATIENT
  Sex: Male

DRUGS (9)
  1. ZANTAC [Suspect]
     Active Substance: RANITIDINE HYDROCHLORIDE
     Indication: COLITIS ULCERATIVE
     Dosage: UNK UNK, WE
     Route: 065
     Dates: start: 198612, end: 200001
  2. ZANTAC [Suspect]
     Active Substance: RANITIDINE HYDROCHLORIDE
     Indication: COLITIS ULCERATIVE
     Dosage: UNK UNK, WE
     Route: 065
     Dates: start: 198612, end: 200001
  3. ZANTAC [Suspect]
     Active Substance: RANITIDINE HYDROCHLORIDE
     Indication: COLITIS ULCERATIVE
     Dosage: UNK UNK, WE
     Route: 065
     Dates: start: 198612, end: 200001
  4. RANITIDINE HCI [Suspect]
     Active Substance: RANITIDINE HYDROCHLORIDE
  5. RANITIDINE. [Suspect]
     Active Substance: RANITIDINE
  6. ZANTAC [Suspect]
     Active Substance: RANITIDINE HYDROCHLORIDE
  7. RANITIDINE CAPSULE [Suspect]
     Active Substance: RANITIDINE
     Indication: COLITIS ULCERATIVE
     Dosage: UNK UNK, WE
     Route: 065
     Dates: start: 198612, end: 200001
  8. RANITIDINE. [Suspect]
     Active Substance: RANITIDINE
     Indication: COLITIS ULCERATIVE
     Dosage: UNK, WE
     Route: 065
     Dates: start: 199701, end: 200001
  9. RANITIDINE. [Suspect]
     Active Substance: RANITIDINE
     Indication: COLITIS ULCERATIVE
     Dosage: UNK, WE
     Route: 065
     Dates: start: 199701, end: 200001

REACTIONS (1)
  - Thyroid cancer [Unknown]
